FAERS Safety Report 6310771-5 (Version None)
Quarter: 2009Q3

REPORT INFORMATION
  Report Type: 
  Country: None (occurrence: None)
  Receive Date: 20090812
  Receipt Date: 20090805
  Transmission Date: 20100115
  Serious: Yes (Other)
  Sender: FDA-Public Use
  Company Number: CHPA2009US16490

PATIENT
  Age: 55 Year
  Sex: Male
  Weight: 90.7 kg

DRUGS (1)
  1. MAALOX ANTACID/ANTIGAS MAX QDTABS ASST (NCH)(CALCIUM CARBONATE, SIMETH [Suspect]
     Indication: DYSPEPSIA
     Dosage: 1 TO 6 TABLETS IN 24 HOURS, ORAL
     Route: 048
     Dates: end: 20090701

REACTIONS (1)
  - URINE SODIUM INCREASED [None]
